FAERS Safety Report 10041770 (Version 1)
Quarter: 2014Q1

REPORT INFORMATION
  Report Type: Spontaneous
  Country: PL (occurrence: PL)
  Receive Date: 20140327
  Receipt Date: 20140327
  Transmission Date: 20141002
  Serious: Yes (Other)
  Sender: FDA-Public Use
  Company Number: PL-ACTAVIS-2014-05486

PATIENT
  Age: 61 Year
  Sex: Female

DRUGS (2)
  1. ZOLPIDEM (UNKNOWN) [Suspect]
     Indication: INSOMNIA
     Dosage: 10 MG, DAILY
     Route: 065
  2. SIBUTRAMINE (UNKNOWN) [Interacting]
     Indication: OBESITY
     Dosage: 15 MG, DAILY
     Route: 065

REACTIONS (5)
  - Abnormal behaviour [Recovered/Resolved]
  - Amnesia [Recovered/Resolved]
  - Drug withdrawal syndrome [Recovered/Resolved]
  - Insomnia [Recovered/Resolved]
  - Drug interaction [Recovered/Resolved]
